FAERS Safety Report 21045302 (Version 2)
Quarter: 2022Q3

REPORT INFORMATION
  Report Type: Report from Study
  Country: CN (occurrence: CN)
  Receive Date: 20220706
  Receipt Date: 20220706
  Transmission Date: 20221027
  Serious: Yes (Other)
  Sender: FDA-Public Use
  Company Number: CN-SUN PHARMACEUTICAL INDUSTRIES LTD-2022R1-343333

PATIENT
  Sex: Female

DRUGS (2)
  1. DECITABINE [Suspect]
     Active Substance: DECITABINE
     Indication: Chemotherapy
     Dosage: UNK
     Route: 065
  2. MITOXANTRONE [Suspect]
     Active Substance: MITOXANTRONE HYDROCHLORIDE
     Indication: Chemotherapy
     Dosage: UNK
     Route: 065

REACTIONS (1)
  - Pancreatitis acute [Unknown]
